FAERS Safety Report 6158994-2 (Version None)
Quarter: 2009Q2

REPORT INFORMATION
  Report Type: 
  Country: None (occurrence: None)
  Receive Date: 20090417
  Receipt Date: 20090409
  Transmission Date: 20091009
  Serious: Yes (Other)
  Sender: FDA-Public Use
  Company Number: FR-JNJFOC-20090402616

PATIENT
  Sex: Female

DRUGS (2)
  1. EPITOMAX [Suspect]
     Indication: EPILEPSY
     Route: 048
  2. KEPPRA [Suspect]
     Indication: EPILEPSY
     Route: 048

REACTIONS (1)
  - GROWTH RETARDATION [None]
